FAERS Safety Report 5882581-4 (Version None)
Quarter: 2008Q3

REPORT INFORMATION
  Report Type: 
  Country: None (occurrence: None)
  Receive Date: 20080913
  Receipt Date: 20080808
  Transmission Date: 20090109
  Serious: Yes (Other)
  Sender: FDA-Public Use
  Company Number: US-ABBOTT-08P-163-0469732-00

PATIENT
  Sex: Female
  Weight: 49.032 kg

DRUGS (14)
  1. HUMIRA [Suspect]
     Indication: CROHN'S DISEASE
     Route: 058
  2. INFLIXIMAB [Suspect]
     Indication: CROHN'S DISEASE
     Dosage: 1 INFUSION PRIOR TO BASELINE--LYOPHILIZED POWDER
     Route: 042
  3. INFLIXIMAB [Suspect]
     Dates: start: 20030703
  4. INFLIXIMAB [Suspect]
     Dates: start: 20030814
  5. INFLIXIMAB [Suspect]
     Dates: start: 20030908
  6. UNSPECIFIED ANTIHISTAMINES [Concomitant]
     Indication: PREMEDICATION
     Dates: start: 20030731, end: 20030731
  7. UNSPECIFIED ANTIHISTAMINES [Concomitant]
     Dates: start: 20030814, end: 20030814
  8. UNSPECIFIED ANTIHISTAMINES [Concomitant]
     Dates: start: 20030908, end: 20030908
  9. STEROIDS [Concomitant]
     Indication: PREMEDICATION
     Dates: start: 20030731, end: 20030731
  10. STEROIDS [Concomitant]
     Dates: start: 20030814, end: 20030814
  11. STEROIDS [Concomitant]
     Dates: start: 20030908, end: 20030908
  12. ACETAMINOPHEN [Concomitant]
     Indication: PREMEDICATION
     Dates: start: 20030731, end: 20030731
  13. ACETAMINOPHEN [Concomitant]
     Dates: start: 20030814, end: 20030814
  14. ACETAMINOPHEN [Concomitant]
     Dates: start: 20030908, end: 20030908

REACTIONS (1)
  - B-CELL LYMPHOMA [None]
